FAERS Safety Report 7609403-5 (Version None)
Quarter: 2011Q3

REPORT INFORMATION
  Report Type: 
  Country: None (occurrence: None)
  Receive Date: 20110714
  Receipt Date: 20110711
  Transmission Date: 20111222
  Serious: Yes (Death)
  Sender: FDA-Public Use
  Company Number: PHHY2011CZ41683

PATIENT
  Sex: Female

DRUGS (2)
  1. ZOMETA [Suspect]
     Indication: METASTASES TO BONE
     Dosage: UNK
     Dates: start: 20080121
  2. ANODYNES [Concomitant]

REACTIONS (3)
  - NEOPLASM PROGRESSION [None]
  - NEOPLASM MALIGNANT [None]
  - BREAST CANCER METASTATIC [None]
